FAERS Safety Report 7189449-4 (Version None)
Quarter: 2010Q4

REPORT INFORMATION
  Report Type: 
  Country: None (occurrence: None)
  Receive Date: 20101223
  Receipt Date: 20101216
  Transmission Date: 20110411
  Serious: Yes (Hospitalization, Disabling)
  Sender: FDA-Public Use
  Company Number: GB-AMGEN-GBRSP2010010460

PATIENT

DRUGS (11)
  1. ENBREL [Suspect]
     Indication: RHEUMATOID ARTHRITIS
     Dosage: 25 MG, UNK
     Route: 058
     Dates: end: 20101104
  2. ADCAL-D3 [Concomitant]
  3. ALENDRONATE SODIUM [Concomitant]
  4. FERROUS FUMARATE [Concomitant]
  5. FOLIC ACID [Concomitant]
  6. LACTULOSE [Concomitant]
  7. METHOTREXATE SODIUM [Concomitant]
  8. MOVICOL [Concomitant]
  9. OMEPRAZOLE SODIUM [Concomitant]
  10. OXYCODONE [Concomitant]
  11. ZOPICLONE [Concomitant]

REACTIONS (1)
  - HAEMORRHAGIC STROKE [None]
